FAERS Safety Report 15767902 (Version 1)
Quarter: 2018Q4

REPORT INFORMATION
  Report Type: Spontaneous
  Country: US (occurrence: US)
  Receive Date: 20181227
  Receipt Date: 20181227
  Transmission Date: 20190205
  Serious: No
  Sender: FDA-Public Use
  Company Number: US-009507513-1812USA010580

PATIENT
  Age: 37 Year
  Sex: Male

DRUGS (2)
  1. TARGRETIN [Concomitant]
     Active Substance: BEXAROTENE
  2. INTRON A [Suspect]
     Active Substance: INTERFERON ALFA-2B
     Indication: MYCOSIS FUNGOIDES
     Dosage: FREQUENCY: OTHER
     Route: 058
     Dates: start: 201811

REACTIONS (1)
  - Off label use [Unknown]

NARRATIVE: CASE EVENT DATE: 20181220
